FAERS Safety Report 25925102 (Version 1)
Quarter: 2025Q4

REPORT INFORMATION
  Report Type: Spontaneous
  Country: EU (occurrence: EU)
  Receive Date: 20251015
  Receipt Date: 20251015
  Transmission Date: 20260117
  Serious: Yes (Hospitalization, Other)
  Sender: SANOFI AVENTIS
  Company Number: None

PATIENT
  Age: 12 Year
  Sex: Female

DRUGS (4)
  1. ETHAMBUTOL [Suspect]
     Active Substance: ETHAMBUTOL HYDROCHLORIDE
     Indication: Pulmonary tuberculosis
     Dosage: 800 MG, QD
     Route: 048
     Dates: start: 20171010, end: 20171019
  2. RIFAMPIN [Suspect]
     Active Substance: RIFAMPIN
     Indication: Pulmonary tuberculosis
     Dosage: 2 TABLETS IN THE MORNING ON AN EMPTY STOMACH
     Route: 048
     Dates: start: 20171010, end: 20171019
  3. ISONIAZID\PYRIDOXINE HYDROCHLORIDE [Suspect]
     Active Substance: ISONIAZID\PYRIDOXINE HYDROCHLORIDE
     Indication: Pulmonary tuberculosis
     Dosage: 1 TABLET IN THE MORNING ON AN EMPTY STOMACH
     Route: 048
     Dates: start: 20171010, end: 20171019
  4. PYRAZINAMIDE [Suspect]
     Active Substance: PYRAZINAMIDE
     Indication: Pulmonary tuberculosis
     Dosage: 1 G, QD
     Route: 048
     Dates: start: 20171010, end: 20171019

REACTIONS (3)
  - Hepatic cytolysis [Recovered/Resolved]
  - Hyperbilirubinaemia [Recovered/Resolved]
  - Hypocoagulable state [Recovered/Resolved]

NARRATIVE: CASE EVENT DATE: 20171018
